FAERS Safety Report 22064383 (Version 1)
Quarter: 2023Q1

REPORT INFORMATION
  Report Type: Spontaneous
  Country: ES (occurrence: ES)
  Receive Date: 20230306
  Receipt Date: 20230306
  Transmission Date: 20230418
  Serious: Yes (Other)
  Sender: FDA-Public Use
  Company Number: None

PATIENT
  Age: 48 Year
  Sex: Female

DRUGS (4)
  1. XELJANZ [Suspect]
     Active Substance: TOFACITINIB CITRATE
     Indication: Colitis ulcerative
     Dosage: 5 MG, 2X/DAY (BREAKFAST/DINNER)
     Route: 048
     Dates: start: 20210906
  2. PARACETAMOL CINFA [Concomitant]
     Indication: Colitis ulcerative
     Dosage: 1 G, 3X/DAY (BREAKFAST/LUNCH/DINNER)
     Route: 048
     Dates: start: 20110610
  3. MESALAMINE [Concomitant]
     Active Substance: MESALAMINE
     Indication: Colitis ulcerative
     Dosage: 3.0 G, 1X/DAY, BREAKFAST
     Route: 048
     Dates: start: 20141030
  4. TACROLIMUS [Concomitant]
     Active Substance: TACROLIMUS
     Indication: Colitis ulcerative
     Dosage: 1.0 ENEMA  (DINNER)
     Route: 054
     Dates: start: 20210528

REACTIONS (1)
  - Loss of libido [Not Recovered/Not Resolved]

NARRATIVE: CASE EVENT DATE: 20220901
